FAERS Safety Report 24283499 (Version 4)
Quarter: 2024Q4

REPORT INFORMATION
  Report Type: Report from Study
  Country: US (occurrence: US)
  Receive Date: 20240904
  Receipt Date: 20241125
  Transmission Date: 20250115
  Serious: Yes (Hospitalization, Other)
  Sender: SUNOVION
  Company Number: US-SUMITOMO PHARMA SWITZERLAND GMBH-2024SPA001150

PATIENT

DRUGS (2)
  1. ORGOVYX [Suspect]
     Active Substance: RELUGOLIX
     Indication: Prostate cancer
     Dosage: 360 MG
     Route: 048
     Dates: start: 20240103, end: 20240103
  2. ORGOVYX [Suspect]
     Active Substance: RELUGOLIX
     Dosage: 120 MG, QD
     Route: 048
     Dates: start: 20240104

REACTIONS (8)
  - Urinary retention [Unknown]
  - Cataract operation [Unknown]
  - Carpal tunnel decompression [Unknown]
  - Overweight [Unknown]
  - Arthritis [Unknown]
  - Fatigue [Unknown]
  - Hot flush [Unknown]
  - Product dose omission in error [Unknown]
